FAERS Safety Report 6315976-5 (Version None)
Quarter: 2009Q3

REPORT INFORMATION
  Report Type: 
  Country: None (occurrence: None)
  Receive Date: 20090819
  Receipt Date: 20090819
  Transmission Date: 20100115
  Serious: Yes (Life-Threatening, Other)
  Sender: FDA-Public Use
  Company Number: None

PATIENT
  Age: 73 Year
  Sex: Male
  Weight: 65.9 kg

DRUGS (1)
  1. VICODIN [Suspect]

REACTIONS (10)
  - ACCIDENT [None]
  - CERVICAL VERTEBRAL FRACTURE [None]
  - HEAD INJURY [None]
  - INFECTION [None]
  - JOINT DISLOCATION [None]
  - LUMBAR VERTEBRAL FRACTURE [None]
  - MEMORY IMPAIRMENT [None]
  - SKULL FRACTURE [None]
  - THORACIC VERTEBRAL FRACTURE [None]
  - VICTIM OF CRIME [None]
